FAERS Safety Report 13247850 (Version 1)
Quarter: 2017Q1

REPORT INFORMATION
  Report Type: Spontaneous
  Country: US (occurrence: US)
  Receive Date: 20170217
  Receipt Date: 20170217
  Transmission Date: 20170428
  Serious: Yes (Hospitalization, Other)
  Sender: FDA-Public Use
  Company Number: US-SUNOVION-2017SUN000642

PATIENT
  Sex: Male
  Weight: 95.24 kg

DRUGS (5)
  1. LUNESTA [Suspect]
     Active Substance: ESZOPICLONE
     Indication: INSOMNIA
     Dosage: 3 MG, HS
     Route: 048
     Dates: start: 1987
  2. VERAPAMIL [Concomitant]
     Active Substance: VERAPAMIL HYDROCHLORIDE
     Indication: HYPERTENSION
     Dosage: UNK
  3. LISINOPRIL + HIDROCLOROTIAZIDA [Concomitant]
     Active Substance: HYDROCHLOROTHIAZIDE\LISINOPRIL
     Indication: RENAL IMPAIRMENT
     Dosage: UNK
  4. INSULIN [Concomitant]
     Active Substance: INSULIN NOS
     Indication: DIABETES MELLITUS
     Dosage: UNK
     Route: 058
     Dates: start: 1987
  5. VYTORIN [Concomitant]
     Active Substance: EZETIMIBE\SIMVASTATIN
     Dosage: UNK

REACTIONS (7)
  - Ketoacidosis [Unknown]
  - Wound [Recovered/Resolved]
  - Osteomyelitis [Unknown]
  - Pain in extremity [Not Recovered/Not Resolved]
  - Toe amputation [Recovered/Resolved]
  - Migraine [Not Recovered/Not Resolved]
  - Insomnia [Not Recovered/Not Resolved]
